FAERS Safety Report 4420498-2 (Version None)
Quarter: 2004Q3

REPORT INFORMATION
  Report Type: 
  Country: None (occurrence: None)
  Receive Date: 20040809
  Receipt Date: 20040316
  Transmission Date: 20050211
  Serious: No
  Sender: FDA-Public Use
  Company Number: US-GLAXOSMITHKLINE-A0502965A

PATIENT
  Age: 26 Year
  Sex: Female

DRUGS (2)
  1. PAXIL CR [Suspect]
     Indication: PANIC DISORDER
     Dosage: 12.5MG AT NIGHT
     Route: 048
     Dates: start: 20030101
  2. ORAL CONTRACEPTIVES [Concomitant]

REACTIONS (1)
  - INSOMNIA [None]
